FAERS Safety Report 4597335-9 (Version None)
Quarter: 2005Q1

REPORT INFORMATION
  Report Type: 
  Country: None (occurrence: None)
  Receive Date: 20050228
  Receipt Date: 20050228
  Transmission Date: 20050727
  Serious: Yes (Death)
  Sender: FDA-Public Use
  Company Number: None

PATIENT
  Age: 36 Year
  Sex: Female
  Weight: 151.0478 kg

DRUGS (1)
  1. LOVENOX [Suspect]
     Indication: THROMBOSIS PROPHYLAXIS
     Dosage: 40 MG/1 X PER DAY SUBCUTANEOUS
     Route: 058
     Dates: start: 20021230, end: 20030108

REACTIONS (2)
  - HAEMORRHAGE [None]
  - POST PROCEDURAL COMPLICATION [None]
